FAERS Safety Report 8246539-2 (Version None)
Quarter: 2012Q1

REPORT INFORMATION
  Report Type: 
  Country: None (occurrence: None)
  Receive Date: 20120330
  Receipt Date: 20120320
  Transmission Date: 20120608
  Serious: Yes (Hospitalization)
  Sender: FDA-Public Use
  Company Number: GB-BRISTOL-MYERS SQUIBB COMPANY-16442709

PATIENT
  Age: 62 Year
  Sex: Female
  Weight: 73 kg

DRUGS (6)
  1. ETOPOSIDE [Suspect]
     Indication: SMALL CELL LUNG CANCER STAGE UNSPECIFIED
     Dosage: MOST RECENT INF: 20JAN12
     Dates: start: 20110923
  2. OMEPRAZOLE [Concomitant]
     Route: 048
  3. DEMECLOCYCLINE HCL [Concomitant]
     Route: 048
     Dates: start: 20120214
  4. CARBOPLATIN [Suspect]
     Indication: SMALL CELL LUNG CANCER STAGE UNSPECIFIED
     Dosage: MOST RECENT: 20JAN12
     Dates: start: 20110923
  5. MORPHINE SULFATE [Concomitant]
     Route: 048
  6. IPILIMUMAB [Suspect]
     Indication: SMALL CELL LUNG CANCER STAGE UNSPECIFIED
     Dosage: THERAPY ON 30DEC12,MOST RECENT INF: 20JAN12.
     Dates: start: 20111111

REACTIONS (4)
  - CONFUSIONAL STATE [None]
  - VOMITING [None]
  - INAPPROPRIATE ANTIDIURETIC HORMONE SECRETION [None]
  - DIARRHOEA [None]
